FAERS Safety Report 9353307 (Version 1)
Quarter: 2013Q2

REPORT INFORMATION
  Report Type: Spontaneous
  Country: CN (occurrence: CN)
  Receive Date: 20130618
  Receipt Date: 20130618
  Transmission Date: 20140414
  Serious: Yes (Other)
  Sender: FDA-Public Use
  Company Number: CN-ASTRAZENECA-2012SE38270

PATIENT
  Age: 73 Year
  Sex: Male

DRUGS (4)
  1. CASODEX [Suspect]
     Indication: PROSTATE CANCER
     Route: 048
     Dates: start: 20101116
  2. ZOLADEX [Suspect]
     Indication: PROSTATE CANCER
     Route: 058
     Dates: start: 20101116, end: 201109
  3. ZOLADEX [Suspect]
     Indication: PROSTATE CANCER
     Route: 058
  4. ASPIRIN [Concomitant]
     Indication: THROMBOSIS
     Route: 048
     Dates: start: 20111116

REACTIONS (4)
  - Disease progression [Recovering/Resolving]
  - Blood glucose increased [Recovered/Resolved]
  - Hyperglycaemia [Unknown]
  - Drug dose omission [Recovered/Resolved]
